FAERS Safety Report 9031095 (Version 1)
Quarter: 2013Q1

REPORT INFORMATION
  Report Type: Spontaneous
  Country: FR (occurrence: FR)
  Receive Date: 20130123
  Receipt Date: 20130123
  Transmission Date: 20140127
  Serious: Yes (Hospitalization)
  Sender: FDA-Public Use
  Company Number: FR-PFIZER INC-2013023405

PATIENT
  Age: 46 Year
  Sex: Female

DRUGS (11)
  1. TRIFLUCAN [Suspect]
     Dosage: 800 MG, 1X/DAY
     Route: 042
     Dates: start: 20121115
  2. CEFOTAN [Concomitant]
  3. METRONIDAZOLE [Concomitant]
  4. DOBUTAMINE [Concomitant]
  5. NOREPINEPHRINE [Concomitant]
  6. FUROSEMIDE [Concomitant]
  7. HYDROCORTISONE [Concomitant]
  8. MIDAZOLAM [Concomitant]
  9. PROPOFOL [Concomitant]
  10. SUFENTANIL [Concomitant]
  11. INSULIN [Concomitant]

REACTIONS (3)
  - Torsade de pointes [Recovered/Resolved]
  - Ventricular fibrillation [Recovered/Resolved]
  - Cardiac arrest [Recovered/Resolved]
